FAERS Safety Report 6743764-4 (Version None)
Quarter: 2010Q2

REPORT INFORMATION
  Report Type: 
  Country: None (occurrence: None)
  Receive Date: 20100526
  Receipt Date: 20100526
  Transmission Date: 20101027
  Serious: Yes (Hospitalization)
  Sender: FDA-Public Use
  Company Number: None

PATIENT
  Sex: Female
  Weight: 71 kg

DRUGS (7)
  1. SORAFENIB 200MG BAYER [Suspect]
     Indication: BREAST CANCER METASTATIC
     Dosage: 2 TABS DAILY PO
     Route: 048
     Dates: start: 20100422, end: 20100523
  2. DYAZIDE [Concomitant]
  3. DILAUDID [Concomitant]
  4. ALPRAZOLAM [Concomitant]
  5. FERROUS SULFATE TAB [Concomitant]
  6. LEXAPRO [Concomitant]
  7. NEXIUM [Concomitant]

REACTIONS (2)
  - DEHYDRATION [None]
  - HYPOKALAEMIA [None]
